FAERS Safety Report 16867926 (Version 1)
Quarter: 2019Q3

REPORT INFORMATION
  Report Type: Report from Study
  Country: RU (occurrence: RU)
  Receive Date: 20190930
  Receipt Date: 20190930
  Transmission Date: 20191005
  Serious: Yes (Hospitalization)
  Sender: FDA-Public Use
  Company Number: PHHO2016RU014618

PATIENT
  Age: 66 Year
  Sex: Male
  Weight: 66.5 kg

DRUGS (11)
  1. PLACEBO [Suspect]
     Active Substance: UNSPECIFIED INGREDIENT
     Dosage: UNK
     Route: 048
     Dates: start: 20160729, end: 20160802
  2. ATORVASTATIN [Concomitant]
     Active Substance: ATORVASTATIN
     Indication: DYSLIPIDAEMIA
     Dosage: 20 MG, BID
     Route: 048
     Dates: start: 201604, end: 20161024
  3. VALSARTAN. [Suspect]
     Active Substance: VALSARTAN
     Dosage: 160 MG, BID
     Route: 048
     Dates: start: 20160729, end: 20160802
  4. TORASEMIDE [Concomitant]
     Active Substance: TORSEMIDE
     Indication: CARDIAC FAILURE
     Dosage: 10 MG, BID
     Route: 048
     Dates: start: 201604, end: 20161223
  5. VALSARTAN. [Suspect]
     Active Substance: VALSARTAN
     Indication: CARDIAC FAILURE
     Dosage: 160 MG, BID
     Route: 048
     Dates: start: 20160727, end: 20160729
  6. VALSARTAN. [Suspect]
     Active Substance: VALSARTAN
     Dosage: 160 MG, BID
     Route: 048
     Dates: start: 20160802, end: 20161004
  7. CARVEDILOL. [Concomitant]
     Active Substance: CARVEDILOL
     Indication: CARDIAC FAILURE
     Dosage: 12.5 MG, BID
     Route: 048
     Dates: start: 20160615, end: 20161024
  8. SPIRONOLACTONE. [Concomitant]
     Active Substance: SPIRONOLACTONE
     Indication: CARDIAC FAILURE
     Dosage: 25 MG, BID
     Route: 048
     Dates: start: 20160615, end: 20161223
  9. PLACEBO [Suspect]
     Active Substance: UNSPECIFIED INGREDIENT
     Dosage: UNK
     Route: 048
     Dates: start: 20160727, end: 20160729
  10. PLACEBO [Suspect]
     Active Substance: UNSPECIFIED INGREDIENT
     Dosage: UNK
     Route: 048
     Dates: start: 20160802, end: 20161004
  11. RIVAROXABAN [Concomitant]
     Active Substance: RIVAROXABAN
     Indication: PROPHYLAXIS
     Dosage: 15 MG, BID
     Route: 048
     Dates: start: 20160615, end: 20161024

REACTIONS (2)
  - Cardiac failure [Recovered/Resolved]
  - Cardiac failure [Recovered/Resolved]

NARRATIVE: CASE EVENT DATE: 20161004
